FAERS Safety Report 4431181-1 (Version None)
Quarter: 2004Q3

REPORT INFORMATION
  Report Type: 
  Country: None (occurrence: None)
  Receive Date: 20040824
  Receipt Date: 20040813
  Transmission Date: 20050211
  Serious: Yes (Other)
  Sender: FDA-Public Use
  Company Number: PHEH2004US08786

PATIENT
  Age: 79 Year
  Sex: Female

DRUGS (3)
  1. ZELNORM [Suspect]
     Indication: IRRITABLE BOWEL SYNDROME
     Dosage: 6 MG, BID
     Dates: start: 20040424
  2. CITRUCEL [Concomitant]
     Indication: CONSTIPATION
  3. MULTIVITAMIN [Concomitant]

REACTIONS (3)
  - ABDOMINAL PAIN [None]
  - BLOOD BLISTER [None]
  - MUSCLE CRAMP [None]
